FAERS Safety Report 8536116-8 (Version None)
Quarter: 2012Q3

REPORT INFORMATION
  Report Type: 
  Country: None (occurrence: None)
  Receive Date: 20120725
  Receipt Date: 20120718
  Transmission Date: 20120928
  Serious: Yes (Other)
  Sender: FDA-Public Use
  Company Number: ID-ASTELLAS-2012JP006710

PATIENT
  Age: 50 Year
  Sex: Female

DRUGS (1)
  1. SOLIFENACIN SUCCINATE [Suspect]
     Indication: DYSURIA
     Dosage: 10 MG, UID/QD
     Route: 048

REACTIONS (1)
  - GASTRIC HAEMORRHAGE [None]
